FAERS Safety Report 20687528 (Version 1)
Quarter: 2022Q2

REPORT INFORMATION
  Report Type: Spontaneous
  Country: CN (occurrence: CN)
  Receive Date: 20220408
  Receipt Date: 20220408
  Transmission Date: 20220721
  Serious: Yes (Life-Threatening, Other)
  Sender: FDA-Public Use
  Company Number: CN-QILU PHARMACEUTICAL (HAINAN) CO., LTD.-QLH-000053-2022

PATIENT
  Age: 56 Year
  Sex: Female

DRUGS (17)
  1. OXALIPLATIN [Suspect]
     Active Substance: OXALIPLATIN
     Indication: Adenocarcinoma gastric
     Dosage: 100 MILLIGRAM VIA TRANSARTERIAL INTERVENTIONAL MICROCATHETER
     Route: 050
     Dates: start: 20210318, end: 20210318
  2. OXALIPLATIN [Suspect]
     Active Substance: OXALIPLATIN
     Indication: HER2 positive gastric cancer
  3. OXALIPLATIN [Suspect]
     Active Substance: OXALIPLATIN
     Indication: Fluorescent in situ hybridisation negative
  4. OXALIPLATIN [Suspect]
     Active Substance: OXALIPLATIN
     Indication: Off label use
  5. CAMRELIZUMAB [Suspect]
     Active Substance: CAMRELIZUMAB
     Indication: Adenocarcinoma gastric
     Dosage: 200 MILLIGRAM, ONE COURSE OF TREATMENT EVERY 3 WEEKS
     Route: 042
     Dates: start: 20210315
  6. CAMRELIZUMAB [Suspect]
     Active Substance: CAMRELIZUMAB
     Indication: HER2 positive gastric cancer
  7. CAMRELIZUMAB [Suspect]
     Active Substance: CAMRELIZUMAB
     Indication: Fluorescent in situ hybridisation negative
  8. APATINIB [Suspect]
     Active Substance: APATINIB
     Indication: Adenocarcinoma gastric
     Dosage: 0.5 GRAM, QD FOR 14 DAYS, ONE COURSE OF TREATMENT EVERY 3 WEEKS
     Route: 048
     Dates: start: 20210321
  9. APATINIB [Suspect]
     Active Substance: APATINIB
     Indication: HER2 positive gastric cancer
  10. APATINIB [Suspect]
     Active Substance: APATINIB
     Indication: Fluorescent in situ hybridisation negative
  11. TS-1 [Suspect]
     Active Substance: GIMERACIL\OTERACIL\TEGAFUR
     Indication: Adenocarcinoma gastric
     Dosage: 40 MILLIGRAM FOR 14 DAYS, ONE COURSE OF TREATMENT EVERY 3 WEEKS
     Route: 048
     Dates: start: 20210329, end: 202106
  12. TS-1 [Suspect]
     Active Substance: GIMERACIL\OTERACIL\TEGAFUR
     Indication: HER2 positive gastric cancer
  13. TS-1 [Suspect]
     Active Substance: GIMERACIL\OTERACIL\TEGAFUR
     Indication: Fluorescent in situ hybridisation negative
  14. PACLITAXEL [Suspect]
     Active Substance: PACLITAXEL
     Indication: Adenocarcinoma gastric
     Dosage: 50 MILLIGRAM/SQ. METER, DAYS 1 AND 8, ONE COURSE OF TREATMENT EVERY 4 WEEKS
     Route: 042
     Dates: start: 20210329, end: 202106
  15. PACLITAXEL [Suspect]
     Active Substance: PACLITAXEL
     Indication: HER2 positive gastric cancer
     Dosage: 20 MILLIGRAM/SQ. METER, DAYS 1 AND 8, ONE COURSE OF TREATMENT EVERY 4 WEEKS
     Route: 033
     Dates: start: 20210329, end: 202106
  16. PACLITAXEL [Suspect]
     Active Substance: PACLITAXEL
     Indication: Fluorescent in situ hybridisation negative
  17. LIPIODOL [Concomitant]
     Active Substance: ETHIODIZED OIL
     Indication: Therapeutic embolisation
     Dosage: UNK
     Route: 065
     Dates: start: 20210318, end: 20210318

REACTIONS (8)
  - Fungal infection [Recovering/Resolving]
  - Bacterial infection [Recovering/Resolving]
  - Myelosuppression [Recovering/Resolving]
  - Gastrointestinal haemorrhage [Recovering/Resolving]
  - Mouth ulceration [Recovering/Resolving]
  - Rash [Recovering/Resolving]
  - Off label use [Unknown]
  - Off label use [Unknown]

NARRATIVE: CASE EVENT DATE: 20210318
